FAERS Safety Report 4456398-1 (Version None)
Quarter: 2004Q3

REPORT INFORMATION
  Report Type: 
  Country: None (occurrence: None)
  Receive Date: 20040902
  Receipt Date: 20040712
  Transmission Date: 20050211
  Serious: No
  Sender: FDA-Public Use
  Company Number: 200412902BWH

PATIENT
  Age: 63 Year
  Sex: Male
  Weight: 76.2043 kg

DRUGS (9)
  1. LEVITRA [Suspect]
     Indication: ERECTILE DYSFUNCTION
     Dosage: SEE IMAGE ORAL
     Route: 048
     Dates: start: 20040216
  2. NORVASC [Concomitant]
  3. LOZOL [Concomitant]
  4. NIASPAN [Concomitant]
  5. ACCUPRIL [Concomitant]
  6. GLUCOTROL [Concomitant]
  7. GLUCOPHAGE [Concomitant]
  8. FLOMAX [Concomitant]
  9. CIALIS [Concomitant]

REACTIONS (2)
  - CYANOPSIA [None]
  - ERECTILE DYSFUNCTION [None]
